FAERS Safety Report 10234321 (Version 1)
Quarter: 2014Q2

REPORT INFORMATION
  Report Type: Not Available
  Country: FR (occurrence: FR)
  Receive Date: 20140612
  Receipt Date: 20140612
  Transmission Date: 20141212
  Serious: Yes (Hospitalization, Other)
  Sender: FDA-Public Use
  Company Number: FR-RB-068532-14

PATIENT
  Age: 31 Year
  Sex: Male

DRUGS (5)
  1. SUBUTEX [Suspect]
     Dosage: UNSPECIFIED UNIT DOSE STRENGTH; CUTTING
     Route: 060
     Dates: start: 2008, end: 201404
  2. SUBUTEX [Suspect]
     Dosage: UNSPECIFIED UNIT DOSE STRENGTH; CUTTING
     Route: 060
     Dates: start: 201404, end: 20140508
  3. SUBUTEX [Suspect]
     Indication: DRUG DEPENDENCE
     Dosage: UNSPECIFIED UNIT DOSE STRENGTH
     Route: 065
     Dates: start: 20140513
  4. ALCOHOL [Suspect]
     Indication: PRODUCT USED FOR UNKNOWN INDICATION
     Dosage: UNKNOWN DAILY DOSING
     Route: 048
  5. TOBACCO [Concomitant]
     Indication: PRODUCT USED FOR UNKNOWN INDICATION
     Dosage: 7.5 PACK A YEAR (10 CIGARETTES DAILY FROM 15 YEARS)
     Route: 055

REACTIONS (3)
  - Pancreatitis acute [Recovered/Resolved]
  - Wrong technique in drug usage process [Recovered/Resolved]
  - Alcohol abuse [Unknown]
